FAERS Safety Report 16194346 (Version 1)
Quarter: 2019Q2

REPORT INFORMATION
  Report Type: Spontaneous
  Country: ES (occurrence: ES)
  Receive Date: 20190414
  Receipt Date: 20190414
  Transmission Date: 20190711
  Serious: Yes (Other)
  Sender: FDA-Public Use
  Company Number: ES-TEVA-2019-ES-1036289

PATIENT
  Age: 82 Year
  Sex: Male

DRUGS (9)
  1. AMLODIPINO 5 MG COMPRIMIDO [Suspect]
     Active Substance: AMLODIPINE BESYLATE
     Indication: HYPERTENSION
     Route: 048
     Dates: start: 20170510, end: 20181205
  2. PARACETAMOL (12A) [Concomitant]
     Active Substance: ACETAMINOPHEN
  3. BELMAZOL 20 MG CAPSULAS DURAS GASTRORRESISTENTES , 28 C?PSULAS [Concomitant]
  4. SOLIFENACINA (2919A) [Concomitant]
  5. BROMAZEPAM (510A) [Concomitant]
  6. FLUTICASONA FUROATO (2582OF) [Concomitant]
  7. EPINASTINA (8250A) [Concomitant]
  8. EBASTEL FORTE FLAS 20 MG LIOFILIZADOS ORALES, 20 LIOFILIZADOS [Concomitant]
  9. PREVENCOR 10 MG COMPRIMIDOS RECUBIERTOS CON PELICULA , 28 COMPRIMIDOS [Concomitant]

REACTIONS (1)
  - Lichenoid keratosis [Recovered/Resolved]

NARRATIVE: CASE EVENT DATE: 20181030
